FAERS Safety Report 9461755 (Version 1)
Quarter: 2013Q3

REPORT INFORMATION
  Report Type: Spontaneous
  Country: CH (occurrence: CH)
  Receive Date: 20130816
  Receipt Date: 20130816
  Transmission Date: 20140515
  Serious: Yes (Other)
  Sender: FDA-Public Use
  Company Number: CH-PERRIGO-13CH008215

PATIENT
  Age: 44 Year
  Sex: Male

DRUGS (1)
  1. IMIQUIMOD 5% 2H1 [Suspect]
     Indication: ACTINIC KERATOSIS
     Dosage: UNKNOWN, 5 OUT OF 7 DAYS
     Route: 061

REACTIONS (1)
  - Basal cell carcinoma [Unknown]
